FAERS Safety Report 4556812-7 (Version None)
Quarter: 2005Q1

REPORT INFORMATION
  Report Type: 
  Country: None (occurrence: None)
  Receive Date: 20050120
  Receipt Date: 20050111
  Transmission Date: 20050727
  Serious: Yes (Hospitalization)
  Sender: FDA-Public Use
  Company Number: US-GLAXOSMITHKLINE-A0540167A

PATIENT
  Sex: Female

DRUGS (1)
  1. TUMS [Suspect]
     Indication: STOMACH DISCOMFORT
     Route: 048

REACTIONS (1)
  - DEAFNESS [None]
